FAERS Safety Report 9162042 (Version 4)
Quarter: 2013Q2

REPORT INFORMATION
  Report Type: Spontaneous
  Country: US (occurrence: None)
  Receive Date: 20130225
  Receipt Date: 20130606
  Transmission Date: 20140414
  Serious: Yes (Hospitalization)
  Sender: FDA-Public Use
  Company Number: 2013-0286

PATIENT
  Age: 65 Year
  Sex: Male
  Weight: 83.46 kg

DRUGS (16)
  1. CARFILZOMIB [Suspect]
     Indication: PLASMA CELL MYELOMA
     Route: 042
     Dates: start: 20121129, end: 20130208
  2. PANOBINOSTAT (PANOBINOSTAT) [Concomitant]
  3. LOMOTIL (ATROPINE SULFATE) (ATROPINE SULFATE) [Concomitant]
  4. ACYCLOVIR (ACICLOVIR) (ACICLOVIR) [Concomitant]
  5. BENADRYL (DIPHENHYDRAMINE HYDROCHLORIDE) (DIPHENHYDRAMINE HYDROCHLORIDE) [Concomitant]
  6. LORTAB (PARACETAMOL) (PARACETAMOL) [Concomitant]
  7. XANAX (ALPRAZOLAM) [Concomitant]
  8. RESTORIL (CHLORMEZANONE) (CHLORMEZANONE) [Concomitant]
  9. CLONIDINE HCL (CLONIDINE HYDROCHLORIDE) (CLONIDINE HYDROCHLORIDE) [Concomitant]
  10. NORVASC (AMLODIPINE BESILATE) (AMLODIPINE BESILATE) [Concomitant]
  11. MUCINEX (GUAIFENSESIN) (GUAIFENESIN) [Concomitant]
  12. LEVAQUIN [Concomitant]
  13. DILAUDID (HYDROMORPHONE HYDROCHLORIDE) [Concomitant]
  14. FLOMAX [Concomitant]
  15. FENTANYL [Concomitant]
  16. ALBUTEROL (SALBUTAMOL) [Concomitant]

REACTIONS (5)
  - Thrombotic thrombocytopenic purpura [None]
  - Renal failure acute [None]
  - Haemolytic uraemic syndrome [None]
  - Microangiopathy [None]
  - Dehydration [None]
